FAERS Safety Report 16098292 (Version 2)
Quarter: 2019Q3

REPORT INFORMATION
  Report Type: Other
  Country: FR (occurrence: FR)
  Receive Date: 20190321
  Receipt Date: 20190722
  Transmission Date: 20191004
  Serious: Yes (Other)
  Sender: FDA-Public Use
  Company Number: FR-DENTSPLY-2019SCDP000152

PATIENT
  Age: 47 Year
  Sex: Male

DRUGS (2)
  1. MEPIVACAINE HCL [Suspect]
     Active Substance: MEPIVACAINE HYDROCHLORIDE
     Indication: ANAESTHESIA
     Dosage: 20 ML, 1.5 %
     Route: 042
     Dates: start: 20180308, end: 20180308
  2. CATAPRESSAN                        /00171101/ [Suspect]
     Active Substance: CLONIDINE
     Indication: ANAESTHESIA
     Dosage: 37.5 MICROGRAM, 0.15 MG/ML SOLUTION INJECTABLE
     Route: 042
     Dates: start: 20180308, end: 20180308

REACTIONS (1)
  - Rash maculo-papular [Recovered/Resolved]

NARRATIVE: CASE EVENT DATE: 20180308
